FAERS Safety Report 13636996 (Version 1)
Quarter: 2017Q2

REPORT INFORMATION
  Report Type: Spontaneous
  Country: US (occurrence: US)
  Receive Date: 20170609
  Receipt Date: 20170609
  Transmission Date: 20170830
  Serious: No
  Sender: FDA-Public Use
  Company Number: US-DRREDDYS-USA/USA/17/0087551

PATIENT
  Sex: Male

DRUGS (3)
  1. FEXOFENADINE HCL [Suspect]
     Active Substance: FEXOFENADINE HYDROCHLORIDE
     Indication: RHINORRHOEA
  2. FEXOFENADINE HCL [Suspect]
     Active Substance: FEXOFENADINE HYDROCHLORIDE
     Indication: VIRAL UPPER RESPIRATORY TRACT INFECTION
  3. FEXOFENADINE HCL [Suspect]
     Active Substance: FEXOFENADINE HYDROCHLORIDE
     Indication: COUGH
     Route: 048
     Dates: start: 20170225

REACTIONS (2)
  - Drug ineffective [Unknown]
  - Product quality issue [Unknown]
